FAERS Safety Report 4522246-4 (Version None)
Quarter: 2004Q4

REPORT INFORMATION
  Report Type: 
  Country: None (occurrence: None)
  Receive Date: 20041207
  Receipt Date: 20041118
  Transmission Date: 20050328
  Serious: Yes (Hospitalization, Other)
  Sender: FDA-Public Use
  Company Number: USA041184072

PATIENT
  Age: 67 Year
  Sex: Female
  Weight: 80 kg

DRUGS (2)
  1. HUMULIN R [Suspect]
     Dosage: 75 U DAY
     Dates: start: 20040922
  2. NEURONTIN (GABAPENTIN PFIZER) [Concomitant]

REACTIONS (7)
  - BLOOD GLUCOSE INCREASED [None]
  - BODY HEIGHT DECREASED [None]
  - EMOTIONAL DISTRESS [None]
  - LOSS OF CONSCIOUSNESS [None]
  - NASOPHARYNGITIS [None]
  - TOE AMPUTATION [None]
  - WEIGHT INCREASED [None]
